FAERS Safety Report 7572425-7 (Version None)
Quarter: 2011Q2

REPORT INFORMATION
  Report Type: 
  Country: None (occurrence: None)
  Receive Date: 20110624
  Receipt Date: 20110615
  Transmission Date: 20111010
  Serious: Yes (Other)
  Sender: FDA-Public Use
  Company Number: US-ASTRAZENECA-2009SE30506

PATIENT
  Age: 25 Year
  Sex: Female

DRUGS (15)
  1. CELEXA [Concomitant]
  2. SEROQUEL [Suspect]
     Route: 048
     Dates: start: 20081201
  3. SEROQUEL [Suspect]
     Route: 048
  4. KLONOPIN [Concomitant]
  5. PHENERGAN HCL [Concomitant]
  6. SEROQUEL [Suspect]
     Indication: BIPOLAR I DISORDER
     Dosage: 25-50 MG DAILY
     Route: 048
  7. SEROQUEL [Suspect]
     Indication: BIPOLAR DISORDER
     Dosage: 25-50 MG DAILY
     Route: 048
  8. SEROQUEL [Suspect]
     Route: 048
  9. SEROQUEL [Suspect]
     Route: 048
     Dates: start: 20081201
  10. SEROQUEL [Suspect]
     Route: 048
     Dates: start: 20081201
  11. SEROQUEL [Suspect]
     Route: 048
     Dates: start: 20081201
  12. PREVACID [Concomitant]
  13. CIPROFLOXACIN [Concomitant]
  14. PHENAZOPYRIDINE HCL TAB [Concomitant]
  15. DITROPAN [Concomitant]

REACTIONS (12)
  - ADJUSTMENT DISORDER [None]
  - VICTIM OF SEXUAL ABUSE [None]
  - LOSS OF CONSCIOUSNESS [None]
  - IMPAIRED DRIVING ABILITY [None]
  - AMNESIA [None]
  - WEIGHT INCREASED [None]
  - DRUG INEFFECTIVE [None]
  - NEPHROLITHIASIS [None]
  - URINARY RETENTION [None]
  - BLADDER CATHETERISATION [None]
  - HYPERSOMNIA [None]
  - SEDATION [None]
